FAERS Safety Report 5649070-3 (Version None)
Quarter: 2008Q1

REPORT INFORMATION
  Report Type: 
  Country: None (occurrence: None)
  Receive Date: 20080304
  Receipt Date: 20080226
  Transmission Date: 20080703
  Serious: Yes (Other)
  Sender: FDA-Public Use
  Company Number: GB-TEVA-168197ISR

PATIENT
  Age: 51 Year
  Sex: Male
  Weight: 102.3 kg

DRUGS (2)
  1. ATENOLOL [Suspect]
     Route: 048
  2. NIFEDIPINE [Suspect]
     Route: 048

REACTIONS (1)
  - BACK PAIN [None]
